FAERS Safety Report 10222522 (Version 1)
Quarter: 2014Q2

REPORT INFORMATION
  Report Type: Report from Study
  Country: FR (occurrence: FR)
  Receive Date: 20140606
  Receipt Date: 20140606
  Transmission Date: 20141212
  Serious: Yes (Other)
  Sender: FDA-Public Use
  Company Number: FR-BAXTER-2014BAX029819

PATIENT
  Sex: 0

DRUGS (9)
  1. ENDOXAN 1000 MG, POUDRE POUR SOLUTION INJECTABLE [Suspect]
     Indication: ACUTE MYELOID LEUKAEMIA
     Dosage: WITH HLA-IDENTICAL SIBLING
     Route: 065
  2. ENDOXAN 1000 MG, POUDRE POUR SOLUTION INJECTABLE [Suspect]
     Dosage: FOR UNRELATED OR MISMATCHED DONORS
     Route: 065
  3. FLUDARABINE [Suspect]
     Indication: ACUTE MYELOID LEUKAEMIA
     Route: 065
  4. CYTARABINE [Suspect]
     Indication: ACUTE MYELOID LEUKAEMIA
     Dosage: 2 G/M2
     Route: 065
  5. AMSACRINE [Suspect]
     Indication: ACUTE MYELOID LEUKAEMIA
     Route: 065
  6. RABBIT ANTITHYMOCYTE GLOBULIN [Suspect]
     Indication: ACUTE MYELOID LEUKAEMIA
     Route: 065
  7. BUSULFAN [Suspect]
     Indication: ACUTE MYELOID LEUKAEMIA
     Route: 065
  8. CICLOSPORINE [Suspect]
     Indication: PROPHYLAXIS AGAINST GRAFT VERSUS HOST DISEASE
     Route: 042
  9. MYCOPHENOLATE MOFETIL [Suspect]
     Indication: PROPHYLAXIS AGAINST GRAFT VERSUS HOST DISEASE
     Route: 065

REACTIONS (1)
  - Chronic graft versus host disease [Unknown]
